FAERS Safety Report 8973243 (Version 1)
Quarter: 2012Q4

REPORT INFORMATION
  Report Type: 
  Country: US (occurrence: US)
  Receive Date: 20121218
  Receipt Date: 20121218
  Transmission Date: 20130627
  Serious: Yes (Other)
  Sender: FDA-Public Use
  Company Number: US-PFIZER INC-2012315455

PATIENT
  Age: 55 Year
  Sex: Male

DRUGS (1)
  1. GLUCOTROL XL [Suspect]
     Dosage: 25 mg, 2x/day
     Route: 048

REACTIONS (7)
  - Loss of consciousness [Unknown]
  - Anaemia [Unknown]
  - Balance disorder [Unknown]
  - Gait disturbance [Unknown]
  - Back pain [Unknown]
  - Dysstasia [Unknown]
  - Disability [Unknown]
